FAERS Safety Report 24949463 (Version 1)
Quarter: 2025Q1

REPORT INFORMATION
  Report Type: Other
  Country: DK (occurrence: DK)
  Receive Date: 20250210
  Receipt Date: 20250210
  Transmission Date: 20250409
  Serious: Yes (Hospitalization, Other)
  Sender: Kanchan Healthcare
  Company Number: DK-Kanchan Healthcare INC-2170863

PATIENT
  Age: 6 Decade
  Sex: Female

DRUGS (10)
  1. ETHAMBUTOL HYDROCHLORIDE [Suspect]
     Active Substance: ETHAMBUTOL HYDROCHLORIDE
     Indication: Tuberculosis
  2. ETHAMBUTOL HYDROCHLORIDE [Suspect]
     Active Substance: ETHAMBUTOL HYDROCHLORIDE
     Indication: Mycobacterium avium complex infection
  3. ETHAMBUTOL HYDROCHLORIDE [Suspect]
     Active Substance: ETHAMBUTOL HYDROCHLORIDE
     Indication: Lymphadenitis
  4. PYRAZINAMIDE [Suspect]
     Active Substance: PYRAZINAMIDE
  5. MOXIFLOXACIN [Concomitant]
     Active Substance: MOXIFLOXACIN
  6. CLARITHROMYCIN [Concomitant]
     Active Substance: CLARITHROMYCIN
  7. RIFABUTIN [Concomitant]
     Active Substance: RIFABUTIN
  8. TENOFOVIR DISOPROXIL FUMARATE [Suspect]
     Active Substance: TENOFOVIR DISOPROXIL FUMARATE
  9. LAMIVUDINE [Suspect]
     Active Substance: LAMIVUDINE
  10. CAPREOMYCIN SULFATE [Suspect]
     Active Substance: CAPREOMYCIN SULFATE

REACTIONS (3)
  - Renal impairment [Recovered/Resolved]
  - Product use in unapproved indication [Unknown]
  - Diplopia [Recovered/Resolved]
